FAERS Safety Report 25257456 (Version 2)
Quarter: 2025Q2

REPORT INFORMATION
  Report Type: Spontaneous
  Country: US (occurrence: US)
  Receive Date: 20250430
  Receipt Date: 20250505
  Transmission Date: 20250716
  Serious: Yes (Other)
  Sender: BAXTER
  Company Number: US-MLMSERVICE-20250417-PI483033-00150-1

PATIENT
  Age: 66 Year
  Sex: Male

DRUGS (3)
  1. FLUCONAZOLE [Interacting]
     Active Substance: FLUCONAZOLE
     Route: 065
  2. METHADONE [Interacting]
     Active Substance: METHADONE HYDROCHLORIDE
     Indication: Pain management
     Route: 065
  3. HYDROMORPHONE [Concomitant]
     Active Substance: HYDROMORPHONE
     Indication: Pain management
     Route: 065

REACTIONS (5)
  - Neurotoxicity [Unknown]
  - Somnolence [Unknown]
  - Myoclonus [Unknown]
  - Sedation [Unknown]
  - Drug interaction [Unknown]
